FAERS Safety Report 11799708 (Version 1)
Quarter: 2015Q4

REPORT INFORMATION
  Report Type: Spontaneous
  Country: AR (occurrence: AR)
  Receive Date: 20151203
  Receipt Date: 20151203
  Transmission Date: 20160305
  Serious: Yes (Disabling, Other)
  Sender: FDA-Public Use
  Company Number: AR-MEDTRONIC-1045032

PATIENT
  Age: 44 Year
  Sex: Female

DRUGS (2)
  1. LIORESAL [Suspect]
     Active Substance: BACLOFEN
     Route: 065
     Dates: start: 2011
  2. GLATIRAMER ACETATE. [Concomitant]
     Active Substance: GLATIRAMER ACETATE

REACTIONS (9)
  - Mobility decreased [Unknown]
  - Head titubation [Unknown]
  - Speech disorder [Unknown]
  - Dysphagia [Unknown]
  - Tremor [Unknown]
  - General physical health deterioration [Unknown]
  - Multiple sclerosis [Unknown]
  - Muscle atrophy [Unknown]
  - Blindness [Unknown]
